FAERS Safety Report 10694615 (Version 1)
Quarter: 2015Q1

REPORT INFORMATION
  Report Type: Spontaneous
  Country: GB (occurrence: GB)
  Receive Date: 20150107
  Receipt Date: 20150107
  Transmission Date: 20150721
  Serious: Yes (Other)
  Sender: FDA-Public Use
  Company Number: GB-TEVA-532119ISR

PATIENT
  Age: 76 Year
  Sex: Female
  Weight: 72 kg

DRUGS (15)
  1. QVAR [Concomitant]
     Active Substance: BECLOMETHASONE DIPROPIONATE
     Dates: start: 20141021, end: 20141216
  2. ASPIRIN. [Concomitant]
     Active Substance: ASPIRIN
     Dates: start: 20141103, end: 20141201
  3. INFLUENZA VIRUS [Concomitant]
     Active Substance: INFLUENZA VIRUS VACCINE
     Dates: start: 20141021, end: 20141022
  4. LEVOTHYROXINE [Concomitant]
     Active Substance: LEVOTHYROXINE
     Dates: start: 20141103, end: 20141201
  5. TRIAMCINOLONE ACETONIDE. [Concomitant]
     Active Substance: TRIAMCINOLONE ACETONIDE
     Dates: start: 20141103, end: 20141104
  6. ATORVASTATIN [Suspect]
     Active Substance: ATORVASTATIN
     Dates: start: 20141103
  7. ASPIRIN. [Concomitant]
     Active Substance: ASPIRIN
     Dates: start: 20140827, end: 20140924
  8. LIDOCAINE. [Concomitant]
     Active Substance: LIDOCAINE
     Dates: start: 20141021, end: 20141022
  9. CAPSAICIN. [Concomitant]
     Active Substance: CAPSAICIN
     Dates: start: 20141021, end: 20141031
  10. LIDOCAINE. [Concomitant]
     Active Substance: LIDOCAINE
     Dates: start: 20141103, end: 20141104
  11. PARACETAMOL [Concomitant]
     Active Substance: ACETAMINOPHEN
     Dates: start: 20141103, end: 20141201
  12. SALBUTAMOL [Concomitant]
     Active Substance: ALBUTEROL
     Dates: start: 20141021, end: 20141118
  13. LEVOTHYROXINE [Concomitant]
     Active Substance: LEVOTHYROXINE
     Dates: start: 20140827, end: 20140924
  14. PARACETAMOL [Concomitant]
     Active Substance: ACETAMINOPHEN
     Dates: start: 20140827, end: 20140924
  15. TRIAMCINOLONE ACETONIDE. [Concomitant]
     Active Substance: TRIAMCINOLONE ACETONIDE
     Dates: start: 20141021, end: 20141022

REACTIONS (1)
  - Dysuria [Recovered/Resolved]

NARRATIVE: CASE EVENT DATE: 20141223
